FAERS Safety Report 7248960-8 (Version None)
Quarter: 2011Q1

REPORT INFORMATION
  Report Type: 
  Country: None (occurrence: None)
  Receive Date: 20110128
  Receipt Date: 20110119
  Transmission Date: 20110831
  Serious: Yes (Other)
  Sender: FDA-Public Use
  Company Number: PHHY2011ES03896

PATIENT
  Age: 76 Year
  Sex: Female

DRUGS (5)
  1. STALEVO 100 [Suspect]
     Indication: PARKINSON'S DISEASE
     Dosage: UNK
     Route: 048
     Dates: start: 20100831
  2. SINEMET [Suspect]
     Indication: PARKINSON'S DISEASE
     Dosage: UNK
     Route: 048
     Dates: start: 20100317
  3. ALPRAZOLAM [Concomitant]
     Dosage: UNK
     Route: 048
     Dates: start: 20090617
  4. ARICEPT [Suspect]
     Indication: MEMORY IMPAIRMENT
     Dosage: 5 MG, QD
     Dates: start: 20100831, end: 20100906
  5. CITALOPRAM [Concomitant]
     Dosage: UNK
     Route: 048
     Dates: start: 20041201

REACTIONS (4)
  - AGITATION [None]
  - NERVOUSNESS [None]
  - ARTHRALGIA [None]
  - TEMPERATURE INTOLERANCE [None]
